FAERS Safety Report 17925896 (Version 1)
Quarter: 2020Q2

REPORT INFORMATION
  Report Type: Spontaneous
  Country: FR (occurrence: FR)
  Receive Date: 20200622
  Receipt Date: 20200622
  Transmission Date: 20200714
  Serious: Yes (Other)
  Sender: FDA-Public Use
  Company Number: NVSC2020FR173166

PATIENT
  Age: 80 Year
  Sex: Male

DRUGS (4)
  1. PLAQUENIL [Interacting]
     Active Substance: HYDROXYCHLOROQUINE SULFATE
     Indication: CORONAVIRUS INFECTION
     Dosage: 600 MG, QD
     Route: 048
     Dates: start: 20200321, end: 20200324
  2. AZITHROMYCIN ANHYDROUS. [Interacting]
     Active Substance: AZITHROMYCIN ANHYDROUS
     Dosage: 250 MG, ONCE/SINGLE
     Route: 050
     Dates: start: 20200325, end: 20200325
  3. PLAQUENIL [Interacting]
     Active Substance: HYDROXYCHLOROQUINE SULFATE
     Dosage: 600 MG, QD
     Route: 050
     Dates: start: 20200324, end: 20200330
  4. AZITHROMYCIN ANHYDROUS. [Suspect]
     Active Substance: AZITHROMYCIN ANHYDROUS
     Indication: CORONAVIRUS INFECTION
     Dosage: 500 MG J1, PUIS 250 MG/JOUR ( 250 MG, COMPRIME PELLICULE)
     Route: 048
     Dates: start: 20200321, end: 20200324

REACTIONS (2)
  - Supraventricular tachycardia [Recovered/Resolved]
  - Electrocardiogram QT prolonged [Not Recovered/Not Resolved]

NARRATIVE: CASE EVENT DATE: 20200325
